FAERS Safety Report 17639455 (Version 2)
Quarter: 2020Q2

REPORT INFORMATION
  Report Type: Report from Study
  Country: CA (occurrence: CA)
  Receive Date: 20200407
  Receipt Date: 20200511
  Transmission Date: 20200713
  Serious: Yes (Other)
  Sender: FDA-Public Use
  Company Number: CA-JNJFOC-20200405637

PATIENT
  Age: 63 Year
  Sex: Female
  Weight: 66.5 kg

DRUGS (2)
  1. REMICADE [Suspect]
     Active Substance: INFLIXIMAB
     Route: 042
  2. REMICADE [Suspect]
     Active Substance: INFLIXIMAB
     Indication: COLITIS ULCERATIVE
     Route: 042
     Dates: start: 20180222

REACTIONS (2)
  - Lung neoplasm malignant [Not Recovered/Not Resolved]
  - Pulmonary mycosis [Not Recovered/Not Resolved]

NARRATIVE: CASE EVENT DATE: 20200403
